FAERS Safety Report 9280675 (Version 3)
Quarter: 2013Q2

REPORT INFORMATION
  Report Type: Spontaneous
  Country: US (occurrence: US)
  Receive Date: 20130509
  Receipt Date: 20130604
  Transmission Date: 20140414
  Serious: Yes (Other)
  Sender: FDA-Public Use
  Company Number: US-PFIZER INC-2013141745

PATIENT
  Age: 38 Year
  Sex: 0

DRUGS (6)
  1. LYRICA [Suspect]
     Dosage: 50 MG, (ONE CAPSULE AT BEDTIME)
     Route: 048
  2. LEVEMIR [Concomitant]
     Dosage: UNK
  3. JANUVIA [Concomitant]
     Dosage: UNK
  4. METFORMIN [Concomitant]
     Dosage: UNK
  5. LISINOPRIL [Concomitant]
     Dosage: UNK
  6. GLYBURIDE [Concomitant]
     Dosage: UNK

REACTIONS (1)
  - Diabetic retinopathy [Unknown]
